FAERS Safety Report 5012057-8 (Version None)
Quarter: 2006Q2

REPORT INFORMATION
  Report Type: 
  Country: None (occurrence: None)
  Receive Date: 20060526
  Receipt Date: 20060512
  Transmission Date: 20061013
  Serious: Yes (Hospitalization)
  Sender: FDA-Public Use
  Company Number: JP-JPN-A200601545

PATIENT
  Age: 32 Year
  Sex: Female

DRUGS (6)
  1. PAXIL [Suspect]
     Indication: PANIC DISORDER
     Dosage: 10MG PER DAY
     Route: 048
     Dates: start: 20040405, end: 20060501
  2. MERCAZOLE [Concomitant]
     Route: 065
  3. GASTER D [Concomitant]
     Route: 048
  4. KIPRES [Concomitant]
     Route: 048
  5. CLARITIN [Concomitant]
     Route: 048
  6. HOKUNALIN [Concomitant]
     Route: 062

REACTIONS (3)
  - ABORTION SPONTANEOUS [None]
  - DRUG EXPOSURE DURING PREGNANCY [None]
  - VOMITING [None]
